FAERS Safety Report 9256732 (Version 4)
Quarter: 2014Q1

REPORT INFORMATION
  Report Type: Spontaneous
  Country: US (occurrence: US)
  Receive Date: 20130426
  Receipt Date: 20140102
  Transmission Date: 20141002
  Serious: Yes (Disabling, Other)
  Sender: FDA-Public Use
  Company Number: US-ASTRAZENECA-2013SE27284

PATIENT
  Age: 16487 Day
  Sex: Male
  Weight: 122.5 kg

DRUGS (17)
  1. NEXIUM [Suspect]
     Indication: GASTROOESOPHAGEAL REFLUX DISEASE
     Route: 048
  2. NEXIUM [Suspect]
     Indication: GASTROOESOPHAGEAL REFLUX DISEASE
     Dosage: 40 MG ONE TO TWO TIMES
     Route: 048
     Dates: start: 200902, end: 201104
  3. NEXIUM [Suspect]
     Indication: GASTROOESOPHAGEAL REFLUX DISEASE
     Route: 048
     Dates: start: 20090223
  4. NEXIUM [Suspect]
     Indication: GASTROOESOPHAGEAL REFLUX DISEASE
     Route: 048
     Dates: start: 20110419
  5. HYDROCORTISONE [Concomitant]
  6. XANAX/ALPRAZOLAM [Concomitant]
     Dates: start: 20110128
  7. XANAX/ALPRAZOLAM [Concomitant]
     Dates: start: 20090123
  8. SPIRIVA [Concomitant]
     Dates: start: 20110419
  9. VERAMYST [Concomitant]
     Dates: start: 20110419
  10. DIPHENHYDRAMINE [Concomitant]
     Dates: start: 20110419
  11. LYRICA [Concomitant]
     Dates: start: 20110128
  12. CRESTOR [Concomitant]
     Route: 048
     Dates: start: 20110418
  13. LACTOSE [Concomitant]
     Route: 048
     Dates: start: 20110419
  14. LORATADINE [Concomitant]
     Dates: start: 20110128
  15. XOPENEX-HFA [Concomitant]
     Dates: start: 20110128
  16. HYDROCOD/APAP [Concomitant]
     Dosage: 7.5/500
     Dates: start: 20110712
  17. PROMETHAZINE [Concomitant]
     Dates: start: 20110128

REACTIONS (10)
  - Hand fracture [Unknown]
  - Mental disorder [Unknown]
  - Limb injury [Unknown]
  - Fall [Unknown]
  - Osteoporosis [Unknown]
  - Bone disorder [Unknown]
  - Arthritis [Unknown]
  - Multiple fractures [Unknown]
  - Joint swelling [Unknown]
  - Arthralgia [Unknown]
